FAERS Safety Report 20618360 (Version 2)
Quarter: 2022Q1

REPORT INFORMATION
  Report Type: Spontaneous
  Country: SE (occurrence: SE)
  Receive Date: 20220321
  Receipt Date: 20220323
  Transmission Date: 20220424
  Serious: Yes (Disabling)
  Sender: FDA-Public Use
  Company Number: SE-BoehringerIngelheim-2022-BI-159678

PATIENT
  Age: 50 Year
  Sex: Male
  Weight: 129 kg

DRUGS (2)
  1. JARDIANCE [Suspect]
     Active Substance: EMPAGLIFLOZIN
     Indication: Type 2 diabetes mellitus
     Dates: start: 2015, end: 2021
  2. JARDIANCE [Suspect]
     Active Substance: EMPAGLIFLOZIN
     Dates: start: 2021, end: 202202

REACTIONS (4)
  - Tooth fracture [Not Recovered/Not Resolved]
  - Tooth erosion [Not Recovered/Not Resolved]
  - Genital infection fungal [Recovered/Resolved]
  - Dry mouth [Recovered/Resolved]

NARRATIVE: CASE EVENT DATE: 20210101
